FAERS Safety Report 22634434 (Version 2)
Quarter: 2023Q2

REPORT INFORMATION
  Report Type: Spontaneous
  Country: US (occurrence: US)
  Receive Date: 20230623
  Receipt Date: 20230628
  Transmission Date: 20230722
  Serious: No
  Sender: FDA-Public Use
  Company Number: US-AMGEN-USASP2023107954

PATIENT
  Age: 0 Year
  Weight: 1.3 kg

DRUGS (1)
  1. AIMOVIG [Suspect]
     Active Substance: ERENUMAB-AOOE
     Indication: Exposure during pregnancy
     Dosage: UNK
     Route: 064

REACTIONS (1)
  - Premature baby [Unknown]

NARRATIVE: CASE EVENT DATE: 20230317
